FAERS Safety Report 13020757 (Version 1)
Quarter: 2016Q4

REPORT INFORMATION
  Report Type: Spontaneous
  Country: IT (occurrence: IT)
  Receive Date: 20161212
  Receipt Date: 20161212
  Transmission Date: 20170207
  Serious: Yes (Other)
  Sender: FDA-Public Use
  Company Number: PHHY2016IT165736

PATIENT
  Age: 77 Year
  Sex: Female
  Weight: 70 kg

DRUGS (1)
  1. LEFLUNOMIDE SANDOZ [Suspect]
     Active Substance: LEFLUNOMIDE
     Indication: DIVERTICULUM INTESTINAL
     Dosage: 20 MG, QD
     Route: 048
     Dates: start: 201609, end: 201610

REACTIONS (4)
  - Abdominal pain upper [Recovering/Resolving]
  - Diarrhoea haemorrhagic [Recovering/Resolving]
  - Pain [Recovering/Resolving]
  - Fatigue [Recovering/Resolving]

NARRATIVE: CASE EVENT DATE: 20161003
